FAERS Safety Report 5673717-9 (Version None)
Quarter: 2008Q1

REPORT INFORMATION
  Report Type: 
  Country: None (occurrence: None)
  Receive Date: 20080319
  Receipt Date: 20080314
  Transmission Date: 20080703
  Serious: Yes (Hospitalization)
  Sender: FDA-Public Use
  Company Number: AU-MERCK-0803AUS00138

PATIENT
  Age: 87 Year
  Sex: Female
  Weight: 65 kg

DRUGS (7)
  1. FOSAMAX [Suspect]
     Indication: OSTEOPOROSIS
     Route: 048
     Dates: start: 20040101
  2. ASPIRIN [Concomitant]
     Route: 048
  3. ATORVASTATIN CALCIUM [Concomitant]
     Indication: LIPIDS ABNORMAL
     Route: 048
  4. CALCIUM CARBONATE [Concomitant]
     Indication: MINERAL SUPPLEMENTATION
     Route: 048
  5. FUROSEMIDE SODIUM [Concomitant]
     Indication: POLYURIA
     Route: 048
  6. RAMIPRIL [Concomitant]
     Indication: HYPERTENSION
     Route: 048
  7. OXYBUTYNIN CHLORIDE [Concomitant]
     Indication: URGE INCONTINENCE
     Route: 048

REACTIONS (2)
  - FALL [None]
  - FEMUR FRACTURE [None]
